FAERS Safety Report 6177183-9 (Version None)
Quarter: 2009Q2

REPORT INFORMATION
  Report Type: 
  Country: None (occurrence: None)
  Receive Date: 20090504
  Receipt Date: 20090424
  Transmission Date: 20091009
  Serious: Yes (Life-Threatening, Hospitalization)
  Sender: FDA-Public Use
  Company Number: JP-PFIZER INC-2009197151

PATIENT

DRUGS (18)
  1. IRINOTECAN HCL [Suspect]
     Indication: COLON CANCER
     Dosage: 150 MG/M2, ONCE
     Route: 042
     Dates: start: 20081028, end: 20081028
  2. IRINOTECAN HCL [Suspect]
     Dosage: 125 MG/M2, ONCE
     Route: 042
     Dates: start: 20081111, end: 20081111
  3. IRINOTECAN HCL [Suspect]
     Dosage: 100 MG/M2, ONCE
     Route: 042
     Dates: start: 20081209, end: 20081209
  4. IRINOTECAN HCL [Suspect]
     Dosage: 80 MG/M2; ONCE IN TWO WEEKS
     Route: 042
     Dates: start: 20090106, end: 20090203
  5. ERBITUX [Suspect]
     Indication: COLON CANCER
     Dosage: 400 MG/M2, ONCE
     Route: 042
     Dates: start: 20081028, end: 20081028
  6. ERBITUX [Suspect]
     Dosage: 250 MG/M2, WEEKLY
     Route: 042
     Dates: start: 20081104, end: 20090217
  7. CHLOR-TRIMETON [Concomitant]
     Indication: PREMEDICATION
     Dosage: 10 MG, 1 IN 1 WEEK
     Route: 042
     Dates: start: 20081028
  8. DECADRON PHOSPHATE [Concomitant]
     Indication: PREMEDICATION
     Dosage: 8 MG, 1 IN 1 WEEK
     Route: 042
     Dates: start: 20081028
  9. ZANTAC [Concomitant]
     Indication: PREMEDICATION
     Dosage: 50 MG, 1 IN 1 WEEK
     Route: 042
     Dates: start: 20081028
  10. SEROTONE [Concomitant]
     Indication: ANTIEMETIC SUPPORTIVE CARE
     Dosage: 10 MG, UNK
     Route: 042
     Dates: start: 20081028
  11. PRIMPERAN [Concomitant]
     Indication: ANTIEMETIC SUPPORTIVE CARE
     Dosage: 10 MG, UNK
     Route: 042
     Dates: start: 20081028
  12. HYPEN [Concomitant]
     Indication: DRUG USE FOR UNKNOWN INDICATION
     Dosage: 400 MG, UNK
     Route: 048
  13. TAMSULOSIN HYDROCHLORIDE [Concomitant]
     Indication: DRUG USE FOR UNKNOWN INDICATION
     Dosage: 0.2 MG, UNK
     Route: 048
  14. FAMOTIDINE [Concomitant]
     Indication: DRUG USE FOR UNKNOWN INDICATION
     Dosage: 40 MG, UNK
     Route: 048
  15. MUCOSTA [Concomitant]
     Indication: DRUG USE FOR UNKNOWN INDICATION
     Dosage: 200 MG, UNK
     Route: 048
  16. JUUZENTAIHOTOU [Concomitant]
     Indication: DRUG USE FOR UNKNOWN INDICATION
     Dosage: 7.5 G, UNK
     Route: 048
  17. HANGE-SHASHIN-TO [Concomitant]
     Indication: DRUG USE FOR UNKNOWN INDICATION
     Dosage: 7.5 G, UNK
     Route: 048
     Dates: start: 20081111
  18. NIFEDIPINE [Concomitant]
     Indication: DRUG USE FOR UNKNOWN INDICATION
     Dosage: 20 MG
     Route: 048

REACTIONS (1)
  - CEREBRAL HAEMORRHAGE [None]
